FAERS Safety Report 22081026 (Version 2)
Quarter: 2023Q1

REPORT INFORMATION
  Report Type: Spontaneous
  Country: CA (occurrence: CA)
  Receive Date: 20230309
  Receipt Date: 20230322
  Transmission Date: 20230418
  Serious: Yes (Congenital Anomaly, Other)
  Sender: FDA-Public Use
  Company Number: CA-TEVA-2023-CA-2862924

PATIENT
  Age: 28 Month
  Sex: Female

DRUGS (1)
  1. LEVETIRACETAM [Suspect]
     Active Substance: LEVETIRACETAM
     Indication: Epilepsy
     Route: 064

REACTIONS (4)
  - Congenital neurological disorder [Recovering/Resolving]
  - Cranial nerve disorder [Recovering/Resolving]
  - Developmental delay [Recovering/Resolving]
  - Foetal exposure during pregnancy [Unknown]
